FAERS Safety Report 8773069 (Version 1)
Quarter: 2012Q4

REPORT INFORMATION
  Report Type: 
  Country: BR (occurrence: BR)
  Receive Date: 20120907
  Receipt Date: 20120907
  Transmission Date: 20130627
  Serious: Yes (Other)
  Sender: FDA-Public Use
  Company Number: PHHY2012BR077857

PATIENT
  Sex: Female
  Weight: 47 kg

DRUGS (2)
  1. LOSARTAN POTASSIUM [Suspect]
     Indication: HYPERTENSION
     Dosage: 50 mg, QD
  2. OMEPRAZOLE [Suspect]
     Indication: GASTROOESOPHAGEAL REFLUX DISEASE

REACTIONS (6)
  - Lung hyperinflation [Recovering/Resolving]
  - Breath sounds abnormal [Recovering/Resolving]
  - Hypoventilation [Recovering/Resolving]
  - Anxiety [Recovering/Resolving]
  - Weight increased [Unknown]
  - Depression [Recovering/Resolving]
